FAERS Safety Report 4783760-X (Version None)
Quarter: 2005Q3

REPORT INFORMATION
  Report Type: 
  Country: None (occurrence: None)
  Receive Date: 20050928
  Receipt Date: 20050915
  Transmission Date: 20060218
  Serious: Yes (Life-Threatening, Hospitalization)
  Sender: FDA-Public Use
  Company Number: 2005096833

PATIENT
  Age: 76 Year
  Sex: Female
  Weight: 75 kg

DRUGS (5)
  1. AROMASIN [Suspect]
     Indication: BREAST CANCER
     Dosage: 25 MG (25 MG, DAILY), ORAL
     Route: 048
     Dates: start: 20020626
  2. PANTOPRAZOLE SODIUM [Concomitant]
  3. BISOPROLOL (BISOPROLOL) [Concomitant]
  4. T-THYROXIN (LEVOTHYROXINE SODIUM) [Concomitant]
  5. KARVEZIDE (HYDROCHLOROTHIAZIDE, IRBESARTAN) [Concomitant]

REACTIONS (4)
  - DEEP VEIN THROMBOSIS [None]
  - DIVERTICULUM [None]
  - MUCOUS MEMBRANE DISORDER [None]
  - ULCER [None]
